FAERS Safety Report 16798034 (Version 1)
Quarter: 2019Q3

REPORT INFORMATION
  Report Type: Report from Study
  Country: IT (occurrence: IT)
  Receive Date: 20190912
  Receipt Date: 20190912
  Transmission Date: 20191005
  Serious: Yes (Life-Threatening)
  Sender: FDA-Public Use
  Company Number: IT-TEVA-2019-IT-1105865

PATIENT
  Age: 66 Year
  Sex: Female

DRUGS (8)
  1. METOTRESSATO TEVA 100 MG/ML INIETTABILE SOLUTION [Suspect]
     Active Substance: METHOTREXATE SODIUM
     Indication: CENTRAL NERVOUS SYSTEM LYMPHOMA
     Route: 041
     Dates: start: 20190318, end: 20190528
  2. METFORMIN [Concomitant]
     Active Substance: METFORMIN HYDROCHLORIDE
  3. VINCRISTTE TEVA ITALIA 1 MG/ML INIETTABILE SOLUTION [Suspect]
     Active Substance: VINCRISTINE
     Indication: CENTRAL NERVOUS SYSTEM LYMPHOMA
     Dates: start: 20190318, end: 20190528
  4. LEVETIRACETAM. [Concomitant]
     Active Substance: LEVETIRACETAM
  5. LEVOFOLENE 25 MG POLVERE PER SOLUZIONE INIETTABILE [Concomitant]
  6. MOVICOL [Concomitant]
     Active Substance: POLYETHYLENE GLYCOL 3350\POTASSIUM CHLORIDE\SODIUM BICARBONATE\SODIUM CHLORIDE
  7. KCL-RETARD 600 MG COMPRESSES TO EXTENDED RELEASE [Concomitant]
  8. LANSOX 15 MG COMPRESSE ORODISPERSIBILI [Concomitant]

REACTIONS (4)
  - Thrombocytopenia [Recovering/Resolving]
  - Pyrexia [Recovering/Resolving]
  - Leukopenia [Recovering/Resolving]
  - Septic shock [Recovering/Resolving]

NARRATIVE: CASE EVENT DATE: 20190531
